FAERS Safety Report 16167899 (Version 1)
Quarter: 2019Q2

REPORT INFORMATION
  Report Type: Spontaneous
  Country: US (occurrence: US)
  Receive Date: 20190408
  Receipt Date: 20190408
  Transmission Date: 20190711
  Serious: Yes (Other)
  Sender: FDA-Public Use
  Company Number: US-SA-2019SA094231

PATIENT
  Age: 1 Year
  Sex: Male

DRUGS (13)
  1. INFLIXIMAB [Suspect]
     Active Substance: INFLIXIMAB
     Indication: GRAFT VERSUS HOST DISEASE
  2. MYCOPHENOLATE [Concomitant]
     Active Substance: MYCOPHENOLIC ACID
     Indication: PROPHYLAXIS AGAINST GRAFT VERSUS HOST DISEASE
  3. MELPHALAN. [Concomitant]
     Active Substance: MELPHALAN
     Indication: BONE MARROW CONDITIONING REGIMEN
     Dosage: REDUCED INTENSITY CONDITIONING
  4. TACROLIMUS. [Concomitant]
     Active Substance: TACROLIMUS
     Indication: PROPHYLAXIS AGAINST GRAFT VERSUS HOST DISEASE
  5. METHYLPREDNISOLONE. [Suspect]
     Active Substance: METHYLPREDNISOLONE
     Indication: GRAFT VERSUS HOST DISEASE
     Dosage: 5 MG/KG, QD
  6. THIOTEPA. [Concomitant]
     Active Substance: THIOTEPA
     Indication: BONE MARROW CONDITIONING REGIMEN
     Dosage: REDUCED INTENSITY CONDITIONING
  7. PROTONIX [Concomitant]
     Active Substance: PANTOPRAZOLE SODIUM
     Indication: SUPPORTIVE CARE
  8. CAMPATH [Suspect]
     Active Substance: ALEMTUZUMAB
     Indication: BONE MARROW CONDITIONING REGIMEN
     Dosage: REDUCED INTENSITY CONDITIONING
  9. METHYLPREDNISOLONE. [Suspect]
     Active Substance: METHYLPREDNISOLONE
     Dosage: 2 MG/KG, QD
  10. NOVOSEVEN [Concomitant]
     Active Substance: COAGULATION FACTOR VIIA RECOMBINANT HUMAN
     Indication: SUPPORTIVE CARE
  11. FLUDARABINE PHOSPHATE. [Suspect]
     Active Substance: FLUDARABINE PHOSPHATE
     Indication: BONE MARROW CONDITIONING REGIMEN
     Dosage: REDUCED INTESITY CONDITIONING
  12. OCTREOTIDE. [Concomitant]
     Active Substance: OCTREOTIDE
     Indication: SUPPORTIVE CARE
  13. ENBREL [Concomitant]
     Active Substance: ETANERCEPT
     Indication: IDIOPATHIC PNEUMONIA SYNDROME

REACTIONS (4)
  - Electrolyte imbalance [Recovered/Resolved]
  - Off label use [Unknown]
  - Haematochezia [Recovered/Resolved]
  - Drug ineffective [Recovered/Resolved]
